FAERS Safety Report 9559522 (Version 1)
Quarter: 2013Q3

REPORT INFORMATION
  Report Type: Spontaneous
  Country: US (occurrence: None)
  Receive Date: 20130906
  Receipt Date: 20130906
  Transmission Date: 20140515
  Serious: Yes (Other)
  Sender: FDA-Public Use
  Company Number: 163-POMAL-13073417

PATIENT
  Age: 66 Year
  Sex: Male

DRUGS (9)
  1. POMALYST [Suspect]
     Indication: PLASMA CELL MYELOMA
     Route: 048
     Dates: start: 20130617
  2. LANTUS (INSULIN GLARGINE) [Concomitant]
  3. APIDRA (INSULIN GLULISINE) [Concomitant]
  4. DULCOLAX (BISACODYL) [Concomitant]
  5. SENOKOT TO GO (SENNA FRUIT) [Concomitant]
  6. TYLENOL (PARACETAMOL) [Concomitant]
  7. B12 ACTIVE (CYANOCOBALAMIN) [Concomitant]
  8. GLYBURIDE (GLIBENCLAMIDE) [Concomitant]
  9. CARISOPRODOL (CARISOPRODOL) [Concomitant]

REACTIONS (1)
  - Ligament sprain [None]
